FAERS Safety Report 10838970 (Version 2)
Quarter: 2015Q2

REPORT INFORMATION
  Report Type: Spontaneous
  Country: US (occurrence: None)
  Receive Date: 20150218
  Receipt Date: 20150407
  Transmission Date: 20150821
  Serious: Yes (Other)
  Sender: FDA-Public Use
  Company Number: BR15-030-AE

PATIENT
  Age: 52 Year
  Sex: Male

DRUGS (1)
  1. SPIRONOLACTONE. [Suspect]
     Active Substance: SPIRONOLACTONE
     Indication: PRODUCT USED FOR UNKNOWN INDICATION
     Dosage: ONE TABLET QD, ORAL
     Route: 048
     Dates: start: 20130215, end: 20140211

REACTIONS (6)
  - Pain [None]
  - Anxiety [None]
  - Adverse reaction [None]
  - Gynaecomastia [None]
  - Breast enlargement [None]
  - Discomfort [None]
